FAERS Safety Report 7016916-6 (Version None)
Quarter: 2010Q3

REPORT INFORMATION
  Report Type: 
  Country: None (occurrence: None)
  Receive Date: 20100927
  Receipt Date: 20100915
  Transmission Date: 20110219
  Serious: No
  Sender: FDA-Public Use
  Company Number: US-PFIZER INC-2010117618

PATIENT
  Sex: Female
  Weight: 71.655 kg

DRUGS (3)
  1. TOVIAZ [Suspect]
     Indication: HYPERTONIC BLADDER
     Dosage: 4 MG, 1X/DAY
     Route: 048
     Dates: start: 20100101
  2. VALSARTAN [Concomitant]
     Indication: HYPERTENSION
     Dosage: 320 MG, UNK
  3. CALCITONIN [Concomitant]
     Indication: OSTEOPOROSIS
     Dosage: UNK
     Route: 045

REACTIONS (2)
  - SKIN LACERATION [None]
  - WEIGHT DECREASED [None]
